FAERS Safety Report 9382029 (Version 1)
Quarter: 2013Q3

REPORT INFORMATION
  Report Type: Spontaneous
  Country: US (occurrence: US)
  Receive Date: 20130703
  Receipt Date: 20130703
  Transmission Date: 20140515
  Serious: Yes (Other)
  Sender: FDA-Public Use
  Company Number: US-PFIZER INC-2013193712

PATIENT
  Sex: Male

DRUGS (1)
  1. ANBESOL MAXIMUM STRENGTH GEL [Suspect]
     Dosage: UNK

REACTIONS (2)
  - Dyspnoea [Unknown]
  - Painful respiration [Unknown]
